FAERS Safety Report 10177142 (Version 1)
Quarter: 2014Q2

REPORT INFORMATION
  Report Type: Spontaneous
  Country: US (occurrence: None)
  Receive Date: 20140515
  Receipt Date: 20140515
  Transmission Date: 20141212
  Serious: Yes (Hospitalization)
  Sender: FDA-Public Use
  Company Number: None

PATIENT
  Age: 66 Year
  Sex: Male
  Weight: 91.8 kg

DRUGS (1)
  1. SUNITINIB MALATE [Suspect]

REACTIONS (3)
  - Ascites [None]
  - Discomfort [None]
  - Medical device complication [None]
